FAERS Safety Report 14278233 (Version 2)
Quarter: 2017Q4

REPORT INFORMATION
  Report Type: Report from Study
  Country: DE (occurrence: DE)
  Receive Date: 20171212
  Receipt Date: 20171228
  Transmission Date: 20180321
  Serious: Yes (Hospitalization, Other)
  Sender: FDA-Public Use
  Company Number: PHHY2017DE181826

PATIENT
  Age: 78 Year
  Sex: Female
  Weight: 66 kg

DRUGS (13)
  1. EXJADE [Suspect]
     Active Substance: DEFERASIROX
     Dosage: 2 DF, UNK (10.588 MG/KG BODYWEIGHT/DA Y= 2 TABLETS A 360 MG)
     Route: 065
     Dates: start: 20170601, end: 20170814
  2. CLEXANE [Concomitant]
     Active Substance: ENOXAPARIN SODIUM
     Indication: PRODUCT USED FOR UNKNOWN INDICATION
     Dosage: 40 UNK, QD
     Route: 065
     Dates: start: 20171110
  3. GRANISETRON [Concomitant]
     Active Substance: GRANISETRON
     Indication: REFRACTORY CYTOPENIA WITH MULTILINEAGE DYSPLASIA
  4. VIDAZA [Concomitant]
     Active Substance: AZACITIDINE
     Indication: MYELODYSPLASTIC SYNDROME
     Dosage: 132 MG, QD
     Route: 058
     Dates: start: 20140721
  5. METOHEXAL [Concomitant]
     Active Substance: METOPROLOL SUCCINATE
     Indication: HYPERTENSION
     Dosage: 47.5 MG, QD
     Route: 065
  6. EXJADE [Suspect]
     Active Substance: DEFERASIROX
     Indication: MYELODYSPLASTIC SYNDROME
     Dosage: 90 MG, UNK (1.363 MG/KG BODYWEIGHT/DAY =1 TABLETS A 90 MG)
     Route: 065
     Dates: start: 20161209, end: 20170309
  7. EXJADE [Suspect]
     Active Substance: DEFERASIROX
     Dosage: 3 DF, UNK (15.882 MG/KG BODYWEIGHT/DAY = 3 TABLETS A 360 MG)
     Route: 065
     Dates: start: 20170815, end: 20171112
  8. EXJADE [Suspect]
     Active Substance: DEFERASIROX
     Dosage: 2 DF, UNK (11.25 MG/KG BODYWEIGHT/DAY = 2 TABLETS A 360 MG)
     Route: 065
     Dates: start: 20171128
  9. GRANISETRON [Concomitant]
     Active Substance: GRANISETRON
     Indication: MYELODYSPLASTIC SYNDROME
     Dosage: 2 MG, UNK (DAY 1 TO 5 EVERY 28 DAYS AT 2 MG PER DAY)
     Route: 048
     Dates: start: 20140721
  10. VIDAZA [Concomitant]
     Active Substance: AZACITIDINE
     Indication: REFRACTORY CYTOPENIA WITH MULTILINEAGE DYSPLASIA
  11. EXJADE [Suspect]
     Active Substance: DEFERASIROX
     Indication: REFRACTORY CYTOPENIA WITH MULTILINEAGE DYSPLASIA
     Dosage: 360 MG, UNK (5.217 MG/KG BODYWEIGHT/DAY =1 TABLETS A 360 MG)
     Route: 065
     Dates: start: 20170310, end: 20170531
  12. COTRIM [Concomitant]
     Active Substance: SULFAMETHOXAZOLE\TRIMETHOPRIM
     Indication: NEUTROPENIA
     Dosage: 1920 MG, UNK (PER DAY; EVERY SATURDAY AND SUNDAY)
     Route: 065
     Dates: start: 20141015
  13. TORASEMIDE [Concomitant]
     Active Substance: TORSEMIDE
     Indication: HYPERTENSION
     Dosage: 5 MG, QD
     Route: 065
     Dates: start: 20171116

REACTIONS (3)
  - Osteoporosis [Recovering/Resolving]
  - Back pain [Recovered/Resolved]
  - Spinal compression fracture [Recovering/Resolving]

NARRATIVE: CASE EVENT DATE: 20171110
